FAERS Safety Report 8387121-6 (Version None)
Quarter: 2012Q1

REPORT INFORMATION
  Report Type: 
  Country: None (occurrence: None)
  Receive Date: 20120323
  Receipt Date: 20110609
  Transmission Date: 20120608
  Serious: Yes (Other)
  Sender: FDA-Public Use
  Company Number: 163-21880-11040262

PATIENT
  Age: 74 Year
  Sex: Male
  Weight: 65.7716 kg

DRUGS (5)
  1. REVLIMID [Suspect]
     Indication: MULTIPLE MYELOMA
     Dosage: 25 MG, 1 IN 1 D, PO; 5 MG, DAILY FOR 21 DAYS, PO
     Route: 048
     Dates: start: 20101222
  2. REVLIMID [Suspect]
     Indication: MULTIPLE MYELOMA
     Dosage: 25 MG, 1 IN 1 D, PO; 5 MG, DAILY FOR 21 DAYS, PO
     Route: 048
     Dates: start: 20110228, end: 20110516
  3. DURAGESIC (FENTANYL) (POULTICE OR PATCH) [Concomitant]
  4. RENEGEL (SEVELAMER) [Concomitant]
  5. RENOCAPS (FOLIC ACID W/VITAMIN B NOS/VITAMIN C) (CAPSULES) [Concomitant]

REACTIONS (3)
  - LEUKOPENIA [None]
  - NEUTROPENIA [None]
  - WEIGHT DECREASED [None]
